FAERS Safety Report 5746382-X (Version None)
Quarter: 2008Q2

REPORT INFORMATION
  Report Type: 
  Country: None (occurrence: None)
  Receive Date: 20080521
  Receipt Date: 20080515
  Transmission Date: 20081010
  Serious: Yes (Death, Hospitalization)
  Sender: FDA-Public Use
  Company Number: APP200800396

PATIENT
  Age: 85 Year
  Sex: Male
  Weight: 81.7 kg

DRUGS (1)
  1. HEPARIN SODIUM INJECTION [Suspect]
     Indication: DIALYSIS
     Dosage: 4000 USP UNITS, ONCE, INTRAVENOUS BOLUS
     Route: 040
     Dates: start: 20080512, end: 20080512

REACTIONS (3)
  - FEELING HOT [None]
  - PULSE ABSENT [None]
  - RESPIRATORY ARREST [None]
